FAERS Safety Report 9005457 (Version 2)
Quarter: 2013Q1

REPORT INFORMATION
  Report Type: Report from Study
  Country: JP (occurrence: JP)
  Receive Date: 20130109
  Receipt Date: 20130324
  Transmission Date: 20140127
  Serious: Yes (Hospitalization)
  Sender: FDA-Public Use
  Company Number: JP-ACTELION-A-CH2013-77325

PATIENT
  Age: 33 Year
  Sex: Female
  Weight: 55.8 kg

DRUGS (12)
  1. TRACLEER [Suspect]
     Indication: PULMONARY ARTERIAL HYPERTENSION
     Dosage: 31.25 MG, BID
     Route: 048
     Dates: start: 20100222, end: 20100228
  2. TRACLEER [Suspect]
     Dosage: 62.5 MG, BID
     Route: 048
     Dates: start: 20100301, end: 20100307
  3. TRACLEER [Suspect]
     Dosage: 125 MG, BID
     Route: 048
     Dates: start: 20100308
  4. BERAPROST SODIUM [Concomitant]
  5. DIGOXIN [Concomitant]
  6. ENALAPRIL MALEATE [Concomitant]
  7. SPIRONOLACTONE [Concomitant]
  8. ALLOPURINOL [Concomitant]
  9. OMEPRAZOLE [Concomitant]
  10. ASPIRIN [Concomitant]
  11. OXYGEN [Concomitant]
  12. SILDENAFIL CITRATE [Concomitant]

REACTIONS (2)
  - Haemoptysis [Recovering/Resolving]
  - Gastroenteritis Escherichia coli [Recovering/Resolving]
